FAERS Safety Report 10777781 (Version 1)
Quarter: 2015Q1

REPORT INFORMATION
  Report Type: Spontaneous
  Country: PL (occurrence: PL)
  Receive Date: 20150209
  Receipt Date: 20150209
  Transmission Date: 20150721
  Serious: Yes (Other)
  Sender: FDA-Public Use
  Company Number: PL-BAXTER-2015BAX001746

PATIENT
  Age: 25 Year
  Sex: Male

DRUGS (9)
  1. MANNITOL 15% BAXTER [Suspect]
     Active Substance: MANNITOL
     Indication: PAPILLITIS
  2. MANNITOL 15% BAXTER [Suspect]
     Active Substance: MANNITOL
     Indication: EYE INFECTION BACTERIAL
  3. KETOPROFEN. [Suspect]
     Active Substance: KETOPROFEN
     Indication: LYME DISEASE
     Route: 065
  4. KETOPROFEN. [Suspect]
     Active Substance: KETOPROFEN
     Indication: PAPILLITIS
  5. VINPOCETINE [Suspect]
     Active Substance: VINPOCETINE
     Indication: PAPILLITIS
  6. VINPOCETINE [Suspect]
     Active Substance: VINPOCETINE
     Indication: LYME DISEASE
     Route: 065
  7. MANNITOL 15% BAXTER [Suspect]
     Active Substance: MANNITOL
     Indication: LYME DISEASE
     Route: 042
  8. KETOPROFEN. [Suspect]
     Active Substance: KETOPROFEN
     Indication: EYE INFECTION BACTERIAL
  9. VINPOCETINE [Suspect]
     Active Substance: VINPOCETINE
     Indication: EYE INFECTION BACTERIAL

REACTIONS (1)
  - Visual impairment [Recovered/Resolved]
